FAERS Safety Report 10175120 (Version 1)
Quarter: 2014Q2

REPORT INFORMATION
  Report Type: Report from Study
  Country: US (occurrence: US)
  Receive Date: 20140515
  Receipt Date: 20140515
  Transmission Date: 20141212
  Serious: Yes (Hospitalization)
  Sender: FDA-Public Use
  Company Number: PHEH2014US009863

PATIENT
  Sex: Female
  Weight: 99.77 kg

DRUGS (1)
  1. GILENYA [Suspect]
     Indication: MULTIPLE SCLEROSIS
     Dosage: 0.5 MG, QD
     Route: 048
     Dates: start: 20140123

REACTIONS (4)
  - Immune system disorder [Recovered/Resolved]
  - Malaise [Recovered/Resolved]
  - Aphagia [Recovered/Resolved]
  - Nausea [Recovered/Resolved]
